FAERS Safety Report 4685049-6 (Version None)
Quarter: 2005Q2

REPORT INFORMATION
  Report Type: 
  Country: None (occurrence: None)
  Receive Date: 20050531
  Receipt Date: 20050209
  Transmission Date: 20051028
  Serious: No
  Sender: FDA-Public Use
  Company Number: WAES 0502USA01037

PATIENT
  Age: 55 Year
  Sex: Female
  Weight: 62.5964 kg

DRUGS (5)
  1. ZETIA [Suspect]
     Indication: BLOOD CHOLESTEROL INCREASED
     Dosage: 10 MG/DAILY/PO
     Route: 048
     Dates: start: 20041208
  2. EFFEXOR [Concomitant]
  3. PROVERA [Concomitant]
  4. WELCHOL [Concomitant]
  5. ESTROGENS [Concomitant]

REACTIONS (1)
  - CONTUSION [None]
